FAERS Safety Report 9648826 (Version 1)
Quarter: 2013Q4

REPORT INFORMATION
  Report Type: Spontaneous
  Country: US (occurrence: US)
  Receive Date: 20131028
  Receipt Date: 20131028
  Transmission Date: 20140711
  Serious: Yes (Other)
  Sender: FDA-Public Use
  Company Number: US-TEVA-440939USA

PATIENT
  Age: 40 Year
  Sex: Female
  Weight: 61.29 kg

DRUGS (1)
  1. PLAN B [Suspect]
     Indication: POST COITAL CONTRACEPTION
     Dosage: 1.5 MILLIGRAM DAILY;
     Route: 048
     Dates: start: 20121006, end: 20121006

REACTIONS (3)
  - Pregnancy after post coital contraception [Recovered/Resolved]
  - Metrorrhagia [Recovered/Resolved]
  - Drug ineffective [Recovered/Resolved]
